FAERS Safety Report 17659374 (Version 1)
Quarter: 2020Q2

REPORT INFORMATION
  Report Type: Spontaneous
  Country: JP (occurrence: JP)
  Receive Date: 20200413
  Receipt Date: 20200413
  Transmission Date: 20200713
  Serious: Yes (Death, Hospitalization)
  Sender: FDA-Public Use
  Company Number: JP-TEVA-2020-JP-1222726

PATIENT
  Age: 77 Year
  Sex: Male

DRUGS (6)
  1. CARPERITIDE [Suspect]
     Active Substance: CARPERITIDE
     Indication: CARDIAC FAILURE
     Route: 065
  2. PEMBROLIZUMAB. [Suspect]
     Active Substance: PEMBROLIZUMAB
     Indication: METASTATIC CARCINOMA OF THE BLADDER
     Route: 065
  3. IMMUNOGLOBULIN (IMMUNOGLOBULIN NOS) [Suspect]
     Active Substance: IMMUNE GLOBULIN NOS
     Indication: MYOCARDITIS
     Dosage: 0.4 G/KG ADMINISTERED OVER 5 DAYS
     Route: 042
  4. FUROSEMIDE. [Suspect]
     Active Substance: FUROSEMIDE
     Indication: CARDIAC FAILURE
     Route: 065
  5. PREDNISONE. [Suspect]
     Active Substance: PREDNISONE
     Indication: MYOCARDITIS
     Route: 065
  6. DOBUTAMINE [Suspect]
     Active Substance: DOBUTAMINE HYDROCHLORIDE
     Indication: CARDIAC FAILURE
     Route: 065

REACTIONS (6)
  - Atrioventricular block complete [Fatal]
  - Cardiac failure [Fatal]
  - Drug ineffective [Fatal]
  - Myasthenia gravis [Fatal]
  - Myocarditis [Fatal]
  - Hypotension [Fatal]
